FAERS Safety Report 8189456-9 (Version None)
Quarter: 2012Q1

REPORT INFORMATION
  Report Type: 
  Country: None (occurrence: None)
  Receive Date: 20120307
  Receipt Date: 20120301
  Transmission Date: 20120608
  Serious: No
  Sender: FDA-Public Use
  Company Number: US-PFIZER INC-2012057084

PATIENT
  Sex: Female
  Weight: 61.224 kg

DRUGS (2)
  1. BENICAR [Concomitant]
     Indication: HYPERTENSION
     Dosage: UNK, DAILY
  2. TOVIAZ [Suspect]
     Indication: MICTURITION DISORDER
     Dosage: 4 MG, DAILY
     Route: 048
     Dates: start: 20120201

REACTIONS (1)
  - DRUG INEFFECTIVE [None]
